FAERS Safety Report 7270291-0 (Version None)
Quarter: 2011Q1

REPORT INFORMATION
  Report Type: 
  Country: None (occurrence: None)
  Receive Date: 20110122
  Receipt Date: 20110122
  Transmission Date: 20110831
  Serious: Yes (Other)
  Sender: FDA-Public Use
  Company Number: None

PATIENT
  Age: 16 Year
  Sex: Male
  Weight: 55.7924 kg

DRUGS (1)
  1. DOXYCYCLINE HYCLATE [Suspect]
     Indication: ACNE
     Dosage: 1 TABLET TWICE DAILY PO
     Route: 048
     Dates: start: 20110108, end: 20110119

REACTIONS (3)
  - PAIN [None]
  - OESOPHAGITIS [None]
  - ULCER [None]
